FAERS Safety Report 16881511 (Version 2)
Quarter: 2019Q4

REPORT INFORMATION
  Report Type: Spontaneous
  Country: US (occurrence: US)
  Receive Date: 20191003
  Receipt Date: 20191121
  Transmission Date: 20200122
  Serious: Yes (Death)
  Sender: FDA-Public Use
  Company Number: US-PFIZER INC-2019428886

PATIENT
  Age: 67 Year
  Sex: Male
  Weight: 81.63 kg

DRUGS (1)
  1. XELJANZ [Suspect]
     Active Substance: TOFACITINIB CITRATE
     Indication: COLITIS ULCERATIVE
     Dosage: 10 MG, 2X/DAY

REACTIONS (2)
  - Road traffic accident [Fatal]
  - Drug ineffective [Unknown]

NARRATIVE: CASE EVENT DATE: 201909
